FAERS Safety Report 4555283-4 (Version None)
Quarter: 2004Q4

REPORT INFORMATION
  Report Type: 
  Country: None (occurrence: None)
  Receive Date: 20041227
  Receipt Date: 20040707
  Transmission Date: 20050328
  Serious: No
  Sender: FDA-Public Use
  Company Number: US082611

PATIENT
  Age: 22 Year
  Sex: Male
  Weight: 47.9 kg

DRUGS (3)
  1. ARANESP [Suspect]
     Indication: HEPATITIS C
     Dosage: 100 MCG, 1 IN 1 WEEKS, SC
     Route: 058
     Dates: start: 20040428, end: 20040623
  2. RIBAVIRIN [Suspect]
     Dates: start: 20040324, end: 20040623
  3. PEGINTERFERON ALFA-2A [Concomitant]

REACTIONS (3)
  - ANAEMIA [None]
  - DYSPNOEA [None]
  - FATIGUE [None]
